FAERS Safety Report 7044646-3 (Version None)
Quarter: 2010Q3

REPORT INFORMATION
  Report Type: 
  Country: None (occurrence: None)
  Receive Date: 20100929
  Receipt Date: 20100712
  Transmission Date: 20110219
  Serious: No
  Sender: FDA-Public Use
  Company Number: US-WYE-H16078110

PATIENT
  Age: 68 Year
  Sex: Male
  Weight: 89.44 kg

DRUGS (8)
  1. PRISTIQ [Suspect]
     Indication: DEPRESSION
     Dosage: (50 MG 1X PER 1 DAY) (UNSPECIFIED DOSE EVERY THIRD DAY) (UNSPECIFIED DOSE EVERY OTHER DAY)
     Dates: start: 20090825, end: 20100601
  2. PRISTIQ [Suspect]
     Indication: DEPRESSION
     Dosage: (50 MG 1X PER 1 DAY) (UNSPECIFIED DOSE EVERY THIRD DAY) (UNSPECIFIED DOSE EVERY OTHER DAY)
     Dates: start: 20100601
  3. XANAX [Concomitant]
  4. ASPIRIN [Concomitant]
  5. METOPROLOL [Concomitant]
  6. VYTORIN [Concomitant]
  7. OMEGA-3 MARINE TRIGLYCERIDES [Concomitant]
  8. PLAVIX [Concomitant]

REACTIONS (4)
  - DIZZINESS [None]
  - DRUG EFFECT DECREASED [None]
  - DRUG WITHDRAWAL SYNDROME [None]
  - MANIA [None]
